FAERS Safety Report 12325473 (Version 1)
Quarter: 2016Q2

REPORT INFORMATION
  Report Type: Spontaneous
  Country: FR (occurrence: FR)
  Receive Date: 20160502
  Receipt Date: 20160502
  Transmission Date: 20160815
  Serious: Yes (Hospitalization, Other)
  Sender: FDA-Public Use
  Company Number: FR-BRISTOL-MYERS SQUIBB COMPANY-BMS-2016-031981

PATIENT
  Age: 76 Year
  Sex: Male

DRUGS (7)
  1. COUMADINE [Suspect]
     Active Substance: WARFARIN SODIUM
     Indication: ARRHYTHMIA
     Dosage: UNK
     Route: 065
  2. AMIODARONE [Interacting]
     Active Substance: AMIODARONE
     Dosage: UNK
     Route: 048
     Dates: start: 20151227
  3. COUMADINE [Interacting]
     Active Substance: WARFARIN SODIUM
     Dosage: 2 MG, QD
     Route: 065
     Dates: start: 20151230
  4. COUMADINE [Interacting]
     Active Substance: WARFARIN SODIUM
     Indication: ATRIAL FIBRILLATION
     Dosage: 3 MG, UNK
     Route: 065
     Dates: start: 20151221
  5. COUMADINE [Interacting]
     Active Substance: WARFARIN SODIUM
     Dosage: 2 MG, QD
     Route: 065
     Dates: start: 20151229
  6. AMIODARONE [Interacting]
     Active Substance: AMIODARONE
     Indication: PANCREATITIS ACUTE
     Dosage: UNK
     Route: 048
     Dates: start: 20151225
  7. TRAMADOL. [Interacting]
     Active Substance: TRAMADOL
     Indication: PANCREATITIS ACUTE
     Dosage: UNK
     Route: 048
     Dates: start: 20151224, end: 20151227

REACTIONS (4)
  - International normalised ratio increased [Recovering/Resolving]
  - Labelled drug-drug interaction medication error [Unknown]
  - Melaena [Recovering/Resolving]
  - Haemorrhagic anaemia [Recovering/Resolving]

NARRATIVE: CASE EVENT DATE: 20151231
